FAERS Safety Report 22072771 (Version 1)
Quarter: 2023Q1

REPORT INFORMATION
  Report Type: Spontaneous
  Country: US (occurrence: US)
  Receive Date: 20230308
  Receipt Date: 20230308
  Transmission Date: 20230417
  Serious: No
  Sender: FDA-Public Use
  Company Number: US-GLENMARK PHARMACEUTICALS-2022GMK074665

PATIENT

DRUGS (3)
  1. ZONISAMIDE [Suspect]
     Active Substance: ZONISAMIDE
     Indication: Seizure
     Dosage: 3 DOSAGE FORM, HS (3 CAPSULES EVERY EVENING AT BEDTIME (75 MG IN TOTAL/DAY).
     Route: 065
  2. ZONISAMIDE [Suspect]
     Active Substance: ZONISAMIDE
     Dosage: UNK, RECALLED BATCH, ON MONDAY (UNSPECIFIED DATE) AND ON TUESDAY MORNING (UNSPECIFIED DATE),
     Route: 065
     Dates: start: 2022
  3. ZONISAMIDE [Suspect]
     Active Substance: ZONISAMIDE
     Dosage: UNK, NEW BATCH OF NON-RECALLED PRODUCT
     Route: 065

REACTIONS (3)
  - Urticaria [Recovered/Resolved]
  - Recalled product administered [Unknown]
  - Rash pruritic [Recovered/Resolved]

NARRATIVE: CASE EVENT DATE: 20220101
